FAERS Safety Report 13829905 (Version 2)
Quarter: 2017Q3

REPORT INFORMATION
  Report Type: Report from Study
  Country: AR (occurrence: AR)
  Receive Date: 20170803
  Receipt Date: 20170818
  Transmission Date: 20171127
  Serious: Yes (Other)
  Sender: FDA-Public Use
  Company Number: PHHY2017AR114050

PATIENT
  Sex: Female

DRUGS (1)
  1. GILENYA [Suspect]
     Active Substance: FINGOLIMOD HYDROCHLORIDE
     Indication: MULTIPLE SCLEROSIS
     Dosage: 0.5 MG, QD
     Route: 065
     Dates: start: 20170726

REACTIONS (4)
  - Heart rate decreased [Recovering/Resolving]
  - Hypotension [Recovered/Resolved]
  - Drug monitoring procedure incorrectly performed [Unknown]
  - Dizziness [Recovered/Resolved]
